FAERS Safety Report 18946932 (Version 1)
Quarter: 2021Q1

REPORT INFORMATION
  Report Type: Spontaneous
  Country: US (occurrence: US)
  Receive Date: 20210227
  Receipt Date: 20210227
  Transmission Date: 20210420
  Serious: Yes (Other)
  Sender: FDA-Public Use
  Company Number: US-ROCHE-2550409

PATIENT
  Sex: Female

DRUGS (9)
  1. RANITIDINE. [Concomitant]
     Active Substance: RANITIDINE
     Dates: start: 20180917
  2. XOLAIR [Suspect]
     Active Substance: OMALIZUMAB
     Indication: IDIOPATHIC URTICARIA
     Route: 058
     Dates: start: 20180815
  3. COUMADIN [Concomitant]
     Active Substance: WARFARIN SODIUM
  4. EPIPEN [Concomitant]
     Active Substance: EPINEPHRINE
     Dates: start: 20180917
  5. CALCIUM [Concomitant]
     Active Substance: CALCIUM
     Dates: start: 20180917
  6. CETIRIZINE [Concomitant]
     Active Substance: CETIRIZINE HYDROCHLORIDE
     Dates: start: 20180917
  7. HYDROXYZINE PAMOATE. [Concomitant]
     Active Substance: HYDROXYZINE PAMOATE
     Dates: start: 20180917
  8. FEXOFENADINE [Concomitant]
     Active Substance: FEXOFENADINE HYDROCHLORIDE
     Dates: start: 20180917
  9. ATORVASTATIN [Concomitant]
     Active Substance: ATORVASTATIN
     Dates: start: 20191002

REACTIONS (1)
  - Breast cancer [Unknown]
